FAERS Safety Report 22905229 (Version 4)
Quarter: 2024Q1

REPORT INFORMATION
  Report Type: Spontaneous
  Country: CA (occurrence: CA)
  Receive Date: 20230905
  Receipt Date: 20240123
  Transmission Date: 20240410
  Serious: Yes (Death, Other)
  Sender: FDA-Public Use
  Company Number: CA-CELLTRION INC.-2023CA017347

PATIENT

DRUGS (4)
  1. INFLECTRA [Suspect]
     Active Substance: INFLIXIMAB-DYYB
     Indication: Crohn^s disease
     Dosage: 10 MG/KG W 0, 2, 6 WEEKS THEN EVERY 4 WEEKS, HOSPITAL START
     Route: 042
     Dates: start: 20230817
  2. INFLECTRA [Suspect]
     Active Substance: INFLIXIMAB-DYYB
     Dosage: 10 MG/KG W 0, 2, 6 WEEKS THEN EVERY 4 WEEKS, HOSPITAL START
     Route: 042
     Dates: start: 20230824
  3. INFLECTRA [Suspect]
     Active Substance: INFLIXIMAB-DYYB
     Dosage: 10 MG/KG W 0, 2, 6 WEEKS THEN EVERY 4 WEEKS, HOSPITAL START
     Route: 042
     Dates: start: 20230922
  4. PREDNISONE [Concomitant]
     Active Substance: PREDNISONE
     Dosage: 40 MG, 2X/DAY IN DECREASING DOSE X 9 WEEKS
     Route: 048

REACTIONS (5)
  - Death [Fatal]
  - Intestinal ulcer [Not Recovered/Not Resolved]
  - Fatigue [Not Recovered/Not Resolved]
  - Constipation [Not Recovered/Not Resolved]
  - Off label use [Unknown]

NARRATIVE: CASE EVENT DATE: 20230817
